FAERS Safety Report 22520755 (Version 2)
Quarter: 2023Q2

REPORT INFORMATION
  Report Type: Spontaneous
  Country: US (occurrence: US)
  Receive Date: 20230605
  Receipt Date: 20230608
  Transmission Date: 20230721
  Serious: Yes (Death, Life-Threatening, Hospitalization, Other)
  Sender: FDA-Public Use
  Company Number: US-ABBVIE-5276021

PATIENT
  Age: 45 Year
  Sex: Female

DRUGS (1)
  1. DIVALPROEX SODIUM [Suspect]
     Active Substance: DIVALPROEX SODIUM
     Indication: Trigeminal neuralgia
     Route: 065

REACTIONS (8)
  - Septic shock [Fatal]
  - Hepatic encephalopathy [Unknown]
  - Acute respiratory failure [Unknown]
  - Anaemia macrocytic [Unknown]
  - Drug reaction with eosinophilia and systemic symptoms [Unknown]
  - Acute kidney injury [Unknown]
  - Spontaneous bacterial peritonitis [Unknown]
  - Drug-induced liver injury [Recovering/Resolving]
